FAERS Safety Report 12470853 (Version 1)
Quarter: 2016Q2

REPORT INFORMATION
  Report Type: Spontaneous
  Country: US (occurrence: None)
  Receive Date: 20160615
  Receipt Date: 20160615
  Transmission Date: 20160815
  Serious: Yes (Disabling)
  Sender: FDA-Public Use
  Company Number: None

PATIENT
  Age: 50 Year
  Sex: Female
  Weight: 106.6 kg

DRUGS (10)
  1. ATORVASTATIN, 40 MG APOTEX CORP [Suspect]
     Active Substance: ATORVASTATIN
     Indication: BLOOD CHOLESTEROL INCREASED
     Route: 048
     Dates: start: 20150101, end: 20160315
  2. VITAMIN D [Concomitant]
     Active Substance: CHOLECALCIFEROL
  3. VITAMIN B12 [Concomitant]
     Active Substance: CYANOCOBALAMIN
  4. ALLOPURINOL. [Concomitant]
     Active Substance: ALLOPURINOL
  5. AMLODIPINE BESYLATE. [Concomitant]
     Active Substance: AMLODIPINE BESYLATE
  6. MULTI VITAMIN [Concomitant]
     Active Substance: VITAMINS
  7. IRBESARTAN. [Concomitant]
     Active Substance: IRBESARTAN
  8. CALCIUM [Concomitant]
     Active Substance: CALCIUM
  9. BYSTOLIC [Concomitant]
     Active Substance: NEBIVOLOL HYDROCHLORIDE
  10. INSULIN [Concomitant]
     Active Substance: INSULIN NOS

REACTIONS (3)
  - Asthenia [None]
  - Activities of daily living impaired [None]
  - Amnesia [None]

NARRATIVE: CASE EVENT DATE: 20160101
